FAERS Safety Report 15238158 (Version 1)
Quarter: 2018Q3

REPORT INFORMATION
  Report Type: Spontaneous
  Country: AU (occurrence: AU)
  Receive Date: 20180803
  Receipt Date: 20180803
  Transmission Date: 20181010
  Serious: Yes (Other)
  Sender: FDA-Public Use
  Company Number: AU-PFIZER INC-2018310242

PATIENT
  Age: 48 Year
  Sex: Male

DRUGS (1)
  1. LYRICA [Suspect]
     Active Substance: PREGABALIN
     Indication: PAIN
     Dosage: 300 MG, UNK

REACTIONS (7)
  - Hallucination [Unknown]
  - Somnolence [Unknown]
  - Aggression [Unknown]
  - Muscle twitching [Unknown]
  - Drug abuse [Unknown]
  - Abnormal behaviour [Unknown]
  - Dyskinesia [Unknown]
